FAERS Safety Report 5266972-0 (Version None)
Quarter: 2007Q1

REPORT INFORMATION
  Report Type: 
  Country: None (occurrence: None)
  Receive Date: 20070316
  Receipt Date: 20070306
  Transmission Date: 20070707
  Serious: Yes (Other)
  Sender: FDA-Public Use
  Company Number: US-ROCHE-482825

PATIENT
  Age: 59 Year
  Sex: Female
  Weight: 53.1 kg

DRUGS (1)
  1. BONIVA [Suspect]
     Indication: OSTEOPOROSIS
     Route: 042
     Dates: start: 20070205

REACTIONS (3)
  - PAIN [None]
  - PITTING OEDEMA [None]
  - WEIGHT INCREASED [None]
